FAERS Safety Report 9001044 (Version 1)
Quarter: 2013Q1

REPORT INFORMATION
  Report Type: Spontaneous
  Country: US (occurrence: None)
  Receive Date: 20130102
  Receipt Date: 20130102
  Transmission Date: 20140127
  Serious: Yes (Other)
  Sender: FDA-Public Use
  Company Number: None

PATIENT
  Sex: Female
  Weight: 62.14 kg

DRUGS (1)
  1. LEVOTHYROXINE [Suspect]
     Indication: POST PROCEDURAL HYPOTHYROIDISM
     Route: 048
     Dates: start: 201008

REACTIONS (5)
  - Psychotic disorder [None]
  - Nervousness [None]
  - Irritability [None]
  - Feeling jittery [None]
  - Insomnia [None]
